FAERS Safety Report 8251562-8 (Version None)
Quarter: 2012Q2

REPORT INFORMATION
  Report Type: 
  Country: None (occurrence: None)
  Receive Date: 20120402
  Receipt Date: 20120319
  Transmission Date: 20120825
  Serious: Yes (Hospitalization)
  Sender: FDA-Public Use
  Company Number: IT-CELGENEUS-083-21880-12032176

PATIENT
  Sex: Male

DRUGS (12)
  1. TELMISARTAN [Concomitant]
     Route: 065
  2. ZEFFIX [Concomitant]
     Route: 065
  3. ALLOPURINOL [Concomitant]
     Route: 065
  4. COUMADIN [Concomitant]
     Route: 065
  5. PANTOPRAZOLE [Concomitant]
     Route: 065
  6. DIBASE [Concomitant]
     Route: 065
  7. ZOLPIDEM TARTRATE [Concomitant]
     Route: 065
  8. REVLIMID [Suspect]
     Indication: MULTIPLE MYELOMA
     Dosage: 25 MILLIGRAM
     Route: 048
     Dates: start: 20120217, end: 20120308
  9. DEXAMETHASONE SODIUM PHOSPHATE [Suspect]
     Indication: MULTIPLE MYELOMA
     Dosage: 20 MILLIGRAM
     Route: 048
     Dates: start: 20120217, end: 20120308
  10. SINVASTATINA [Concomitant]
     Route: 065
  11. SELEPARINA [Concomitant]
     Route: 065
  12. DURAGESIC-100 [Concomitant]
     Route: 065

REACTIONS (3)
  - SUBILEUS [None]
  - SEPSIS [None]
  - URINARY RETENTION [None]
